FAERS Safety Report 9773177 (Version 1)
Quarter: 2013Q4

REPORT INFORMATION
  Report Type: Spontaneous
  Country: CA (occurrence: CA)
  Receive Date: 20131219
  Receipt Date: 20131219
  Transmission Date: 20140711
  Serious: Yes (Other)
  Sender: FDA-Public Use
  Company Number: CA-ELI_LILLY_AND_COMPANY-CA201312003789

PATIENT
  Age: 58 Year
  Sex: Female

DRUGS (4)
  1. HUMALOG LISPRO [Suspect]
     Indication: PRODUCT USED FOR UNKNOWN INDICATION
     Dosage: 5 U, PRN
     Route: 065
  2. HUMALOG LISPRO [Suspect]
     Dosage: 20 U, EACH EVENING
     Route: 065
  3. HUMALOG LISPRO [Suspect]
     Dosage: 5 U, PRN
     Route: 065
  4. HUMALOG LISPRO [Suspect]
     Dosage: 20 U, EACH EVENING
     Route: 065

REACTIONS (9)
  - Blood glucose increased [Recovered/Resolved]
  - Dysarthria [Recovered/Resolved]
  - Feeling drunk [Recovered/Resolved]
  - Disturbance in attention [Recovered/Resolved]
  - Blood glucose abnormal [Recovering/Resolving]
  - Feeling abnormal [Recovering/Resolving]
  - Vomiting [Recovering/Resolving]
  - Nausea [Recovering/Resolving]
  - Drug dose omission [Recovered/Resolved]
